FAERS Safety Report 4565430-6 (Version None)
Quarter: 2005Q1

REPORT INFORMATION
  Report Type: 
  Country: None (occurrence: None)
  Receive Date: 20050125
  Receipt Date: 20050125
  Transmission Date: 20050727
  Serious: Yes (Other)
  Sender: FDA-Public Use
  Company Number: None

PATIENT
  Age: 63 Year
  Sex: Female
  Weight: 58.9676 kg

DRUGS (1)
  1. ZOMETA [Suspect]
     Dosage: EVERY MONTH   INTRAVENOU
     Route: 042
     Dates: start: 20030409, end: 20051029

REACTIONS (5)
  - BLOOD CALCIUM INCREASED [None]
  - DRUG WITHDRAWAL SYNDROME [None]
  - DYSPNOEA [None]
  - NEURALGIA [None]
  - UNEVALUABLE EVENT [None]
